FAERS Safety Report 23218076 (Version 1)
Quarter: 2023Q4

REPORT INFORMATION
  Report Type: Spontaneous
  Country: CN (occurrence: CN)
  Receive Date: 20231122
  Receipt Date: 20231122
  Transmission Date: 20240109
  Serious: Yes (Other)
  Sender: FDA-Public Use
  Company Number: CN-TAKEDA-2023TUS112536

PATIENT
  Age: 7 Year
  Sex: Female
  Weight: 36.8 kg

DRUGS (1)
  1. ENANTONE LP [Suspect]
     Active Substance: LEUPROLIDE ACETATE
     Indication: Precocious puberty
     Dosage: 3.75 MILLIGRAM, MONTHLY
     Route: 058
     Dates: start: 20230802, end: 20231003

REACTIONS (1)
  - Injection site abscess sterile [Recovering/Resolving]

NARRATIVE: CASE EVENT DATE: 20231003
